FAERS Safety Report 8592670-1 (Version None)
Quarter: 2012Q3

REPORT INFORMATION
  Report Type: 
  Country: None (occurrence: None)
  Receive Date: 20120814
  Receipt Date: 20120809
  Transmission Date: 20120928
  Serious: Yes (Hospitalization)
  Sender: FDA-Public Use
  Company Number: US-ABBOTT-12P-163-0967342-00

PATIENT
  Sex: Male
  Weight: 102.15 kg

DRUGS (4)
  1. XANAX [Concomitant]
     Indication: ANXIETY
  2. LIPITOR [Concomitant]
     Indication: HYPERLIPIDAEMIA
  3. HUMIRA [Suspect]
     Indication: CROHN'S DISEASE
     Dates: start: 20090101, end: 20100101
  4. GLYBURIDE [Concomitant]
     Indication: DIABETES MELLITUS

REACTIONS (3)
  - WEIGHT DECREASED [None]
  - ANAL FISTULA [None]
  - INFECTION [None]
